FAERS Safety Report 18940706 (Version 2)
Quarter: 2021Q2

REPORT INFORMATION
  Report Type: Report from Study
  Country: AU (occurrence: AU)
  Receive Date: 20210225
  Receipt Date: 20210614
  Transmission Date: 20210717
  Serious: Yes (Hospitalization, Other)
  Sender: FDA-Public Use
  Company Number: AU-TAKEDA-AU201944353

PATIENT
  Sex: Female

DRUGS (4)
  1. TEDUGLUTIDE [Suspect]
     Active Substance: TEDUGLUTIDE
     Indication: SHORT-BOWEL SYNDROME
     Dosage: 0.3 MILLILITER, 1X/DAY:QD
     Route: 058
     Dates: start: 20190410
  2. TEDUGLUTIDE [Suspect]
     Active Substance: TEDUGLUTIDE
     Indication: SHORT-BOWEL SYNDROME
     Dosage: 0.3 MILLILITER, 1X/DAY:QD
     Route: 058
     Dates: start: 20190410
  3. TEDUGLUTIDE [Suspect]
     Active Substance: TEDUGLUTIDE
     Indication: SHORT-BOWEL SYNDROME
     Dosage: 0.3 MILLILITER, 1X/DAY:QD
     Route: 058
     Dates: start: 20190410
  4. TEDUGLUTIDE [Suspect]
     Active Substance: TEDUGLUTIDE
     Indication: SHORT-BOWEL SYNDROME
     Dosage: 0.3 MILLILITER, 1X/DAY:QD
     Route: 058
     Dates: start: 20190410

REACTIONS (5)
  - Sepsis [Unknown]
  - Gastroenteritis norovirus [Unknown]
  - Inappropriate schedule of product administration [Unknown]
  - Hospitalisation [Unknown]
  - Food poisoning [Unknown]
